FAERS Safety Report 4639063-7 (Version None)
Quarter: 2005Q2

REPORT INFORMATION
  Report Type: 
  Country: None (occurrence: None)
  Receive Date: 20050419
  Receipt Date: 20050310
  Transmission Date: 20051028
  Serious: Yes (Other)
  Sender: FDA-Public Use
  Company Number: US-JNJFOC-20050303941

PATIENT
  Sex: Female

DRUGS (6)
  1. TYLENOL [Suspect]
     Route: 049
  2. TYLENOL [Suspect]
     Indication: ARTHRITIS
     Route: 049
  3. NORVASC [Concomitant]
  4. ASPIRIN [Concomitant]
  5. ZYRTEC [Concomitant]
  6. LIPITOR [Concomitant]

REACTIONS (1)
  - SWELLING FACE [None]
